FAERS Safety Report 14057258 (Version 1)
Quarter: 2017Q4

REPORT INFORMATION
  Report Type: Spontaneous
  Country: US (occurrence: US)
  Receive Date: 20171006
  Receipt Date: 20171006
  Transmission Date: 20180321
  Serious: Yes (Hospitalization)
  Sender: FDA-Public Use
  Company Number: US-TEVA-812787USA

PATIENT
  Sex: Female

DRUGS (2)
  1. PRAVASTATIN. [Suspect]
     Active Substance: PRAVASTATIN
     Dates: start: 201708
  2. BUPROPION. [Suspect]
     Active Substance: BUPROPION
     Route: 065
     Dates: start: 201708

REACTIONS (6)
  - Pain [Unknown]
  - Palpitations [Unknown]
  - Chest pain [Unknown]
  - Dyspnoea [Unknown]
  - Chest discomfort [Unknown]
  - Anxiety [Unknown]

NARRATIVE: CASE EVENT DATE: 20170915
